FAERS Safety Report 6388463-6 (Version None)
Quarter: 2009Q4

REPORT INFORMATION
  Report Type: 
  Country: None (occurrence: None)
  Receive Date: 20091005
  Receipt Date: 20090930
  Transmission Date: 20100525
  Serious: Yes (Disabling)
  Sender: FDA-Public Use
  Company Number: A0809635A

PATIENT
  Age: 48 Year
  Sex: Female

DRUGS (4)
  1. LAMICTAL [Suspect]
     Indication: EPILEPSY
     Dosage: 200MG PER DAY
     Route: 048
     Dates: start: 20060201, end: 20080701
  2. ENALAPRIL MALEATE [Concomitant]
     Dosage: 10MG PER DAY
     Route: 048
  3. CLONAZEPAM [Concomitant]
  4. PHENOBARBITAL [Concomitant]

REACTIONS (3)
  - CONJUNCTIVITIS [None]
  - EYE DISORDER [None]
  - ULCERATIVE KERATITIS [None]
